FAERS Safety Report 8576503-5 (Version None)
Quarter: 2012Q3

REPORT INFORMATION
  Report Type: 
  Country: None (occurrence: None)
  Receive Date: 20120807
  Receipt Date: 20120723
  Transmission Date: 20120928
  Serious: Yes (Other)
  Sender: FDA-Public Use
  Company Number: FR-ROCHE-1092238

PATIENT
  Sex: Female
  Weight: 88 kg

DRUGS (21)
  1. MABTHERA [Suspect]
     Indication: B-CELL LYMPHOMA
     Dosage: LAST DOSE PRIOR TO SAE 04 JUN 2012
     Route: 042
     Dates: start: 20120507
  2. ATARAX [Concomitant]
     Dates: start: 20100101
  3. VOGALENE [Concomitant]
     Indication: VOMITING
  4. VOGALENE [Concomitant]
     Indication: PROPHYLAXIS
     Dates: start: 20120507
  5. HEMISUCCINATE D'HYDROCORTISONE [Concomitant]
     Indication: PREMEDICATION
     Dates: start: 20120507
  6. INDAPAMIDE [Concomitant]
     Indication: HYPERTENSION
     Dates: start: 20090115
  7. DIHYDROERGOTAMINE MESYLATE [Concomitant]
     Indication: MIGRAINE
     Dates: start: 20040101
  8. ATORVASTATIN [Concomitant]
     Indication: HYPERCHOLESTEROLAEMIA
     Dates: start: 20090115
  9. ACETAMINOPHEN [Concomitant]
     Indication: PROPHYLAXIS
     Dates: start: 20020101
  10. NEXIUM [Concomitant]
     Indication: PROPHYLAXIS AGAINST GASTROINTESTINAL ULCER
     Dates: start: 20120507
  11. ZOFRAN [Concomitant]
     Indication: VOMITING
  12. ACETAMINOPHEN [Concomitant]
     Indication: PREMEDICATION
     Dates: start: 20120507
  13. MABTHERA [Suspect]
     Route: 042
     Dates: start: 20120702
  14. MABTHERA [Suspect]
     Dosage: LAST DOSE PRIOR TO SAE 04 JUN 2012
     Route: 058
     Dates: start: 20120604
  15. GAVISCON ACID [Concomitant]
     Indication: PROPHYLAXIS
     Dates: start: 20120402
  16. SULFAMETHOXAZOLE AND TRIMETHOPRIM [Concomitant]
     Indication: PROPHYLAXIS
     Dates: start: 20120507
  17. XANAX [Concomitant]
     Indication: ANXIETY
     Dates: start: 20120507, end: 20120508
  18. TEMAZEPAM [Concomitant]
     Indication: MYALGIA
     Dates: start: 20120507, end: 20120508
  19. LEUCOVORIN CALCIUM [Concomitant]
     Indication: PROPHYLAXIS
     Dates: start: 20120507
  20. VALACYCLOVIR HYDROCHLORIDE [Concomitant]
     Indication: PROPHYLAXIS
     Dates: start: 20120507
  21. ZOFRAN [Concomitant]
     Indication: PROPHYLAXIS
     Dates: start: 20120507

REACTIONS (1)
  - VESSEL PUNCTURE SITE REACTION [None]
